FAERS Safety Report 8491835 (Version 5)
Quarter: 2012Q4

REPORT INFORMATION
  Report Type: 
  Country: US (occurrence: US)
  Receive Date: 20120403
  Receipt Date: 20121003
  Transmission Date: 20130627
  Serious: Yes (Hospitalization, Other)
  Sender: FDA-Public Use
  Company Number: US-ALEXION-A201200554

PATIENT
  Age: 74 None
  Sex: Female

DRUGS (23)
  1. SOLIRIS 300MG [Suspect]
     Indication: PAROXYSMAL NOCTURNAL HAEMOGLOBINURIA
     Dosage: 900 mg, q2w
     Route: 042
     Dates: end: 201204
  2. EXJADE [Suspect]
     Dosage: UNK
  3. LASIX [Concomitant]
     Dosage: 40 mg, qd
  4. PROCRIT [Concomitant]
     Dosage: 10,000 units, UNK
  5. CRESTOR [Concomitant]
     Dosage: 5 mg, qd
  6. PREDNISONE [Concomitant]
     Dosage: 2 mg, qd
  7. PROTONIX [Concomitant]
     Dosage: 40 mg, qd
  8. ASPIRIN [Concomitant]
     Dosage: 81 mg, qd
  9. CALCIUM + VITAMIN D [Concomitant]
     Dosage: 1 1/2 tab, qd
  10. MULTIVITAMIN [Concomitant]
     Dosage: UNK, qd
  11. NORVASC [Concomitant]
     Dosage: 5 mg, qd
  12. ATENOLOL [Concomitant]
     Dosage: 25 mg, bid
  13. COMBIVENT [Concomitant]
     Dosage: 2 puffs, bid
  14. NITROGLYCERIN [Concomitant]
     Dosage: UNK, prn
  15. HUMALOG [Concomitant]
     Indication: DIABETES MELLITUS
     Dosage: sliding scale
  16. GLIPIZIDE [Concomitant]
     Indication: DIABETES MELLITUS
     Dosage: 10 mg, prn
  17. ALLOPURINOL [Concomitant]
     Dosage: 10 mg, prn
  18. ALPHAGAN [Concomitant]
     Dosage: 1 Gtt, bid
     Route: 031
  19. TIMOLOL [Concomitant]
     Dosage: 1 Gtt, bid
     Route: 031
  20. LOVENOX [Concomitant]
     Dosage: 40 mg, qd
  21. OXYCODONE [Concomitant]
     Dosage: 5 mg, q 4 hrs.
  22. TYLENOL [Concomitant]
     Dosage: 650 mg, prn
  23. LISINOPRIL [Concomitant]
     Dosage: UNK

REACTIONS (7)
  - Infected cyst [Recovering/Resolving]
  - Acute myocardial infarction [Recovered/Resolved]
  - Staphylococcal abscess [Unknown]
  - Urinary tract infection [Recovered/Resolved]
  - Abdominal pain [Recovered/Resolved]
  - Haemoglobin decreased [Recovered/Resolved]
  - Diarrhoea [Recovered/Resolved]
